FAERS Safety Report 4540922-4 (Version None)
Quarter: 2004Q4

REPORT INFORMATION
  Report Type: 
  Country: None (occurrence: None)
  Receive Date: 20041229
  Receipt Date: 20041203
  Transmission Date: 20050328
  Serious: Yes (Hospitalization)
  Sender: FDA-Public Use
  Company Number: JP-GLAXOSMITHKLINE-B0359217A

PATIENT
  Age: 85 Year
  Sex: Female

DRUGS (11)
  1. VALTREX [Suspect]
     Indication: HERPES ZOSTER
     Dosage: 1000MG THREE TIMES PER DAY
     Route: 048
     Dates: start: 20041005, end: 20041008
  2. METHYCOOL [Concomitant]
     Dosage: 1500MCG PER DAY
     Route: 048
     Dates: start: 20041005, end: 20041008
  3. TICLOPIDINE HCL [Concomitant]
     Indication: HYPERTENSION
     Dosage: 100MG PER DAY
     Route: 048
  4. BLOPRESS [Concomitant]
     Indication: HYPERTENSION
     Dosage: 8MG PER DAY
     Route: 048
  5. NORVASC [Concomitant]
     Indication: HYPERTENSION
     Dosage: 5MG PER DAY
     Route: 048
  6. CARDENALIN [Concomitant]
     Indication: HYPERTENSION
     Dosage: 2MG PER DAY
     Route: 048
  7. LANSOPRAZOLE [Concomitant]
     Indication: REFLUX OESOPHAGITIS
     Dosage: 15MG PER DAY
     Route: 048
  8. MEDROL [Concomitant]
     Indication: ASTHMA
     Dosage: 2MG PER DAY
     Route: 048
  9. DEPAS [Concomitant]
     Dosage: .75MG PER DAY
     Route: 048
  10. BROTIZOLAM [Concomitant]
     Dosage: .25MG PER DAY
     Route: 048
  11. DESYREL [Concomitant]
     Dosage: 25MG PER DAY
     Route: 048
     Dates: start: 20040817

REACTIONS (5)
  - BLOOD CREATININE INCREASED [None]
  - BLOOD UREA INCREASED [None]
  - PAIN [None]
  - RENAL ATROPHY [None]
  - RENAL FAILURE ACUTE [None]
